FAERS Safety Report 10449168 (Version 2)
Quarter: 2014Q4

REPORT INFORMATION
  Report Type: Spontaneous
  Country: US (occurrence: US)
  Receive Date: 20140912
  Receipt Date: 20141028
  Transmission Date: 20150528
  Serious: No
  Sender: FDA-Public Use
  Company Number: US-ASTRAZENECA-2014SE67857

PATIENT
  Sex: Female

DRUGS (2)
  1. NEXIUM 24HR [Suspect]
     Active Substance: ESOMEPRAZOLE MAGNESIUM
     Route: 048
     Dates: start: 2014
  2. AXID [Suspect]
     Active Substance: NIZATIDINE
     Route: 065

REACTIONS (6)
  - Diarrhoea [Unknown]
  - Pain [Unknown]
  - Muscle spasms [Unknown]
  - Dizziness [Unknown]
  - Product packaging quantity issue [Unknown]
  - Poor quality drug administered [Unknown]

NARRATIVE: CASE EVENT DATE: 2014
